FAERS Safety Report 12056340 (Version 1)
Quarter: 2016Q1

REPORT INFORMATION
  Report Type: Spontaneous
  Country: US (occurrence: US)
  Receive Date: 20160209
  Receipt Date: 20160209
  Transmission Date: 20160526
  Serious: No
  Sender: FDA-Public Use
  Company Number: US-ABBVIE-15P-163-1475839-00

PATIENT

DRUGS (2)
  1. METHOTREXATE [Suspect]
     Active Substance: METHOTREXATE
     Indication: PRODUCT USED FOR UNKNOWN INDICATION
     Route: 065
  2. HUMIRA [Suspect]
     Active Substance: ADALIMUMAB
     Indication: PRODUCT USED FOR UNKNOWN INDICATION
     Route: 065

REACTIONS (10)
  - Haemoglobin abnormal [Unknown]
  - Nasal dryness [Unknown]
  - Gastrointestinal ulcer [Unknown]
  - White blood cell count abnormal [Unknown]
  - Stomatitis [Not Recovered/Not Resolved]
  - Pharyngeal ulceration [Unknown]
  - Pain [Unknown]
  - Dry mouth [Unknown]
  - Gastrooesophageal reflux disease [Unknown]
  - Skin exfoliation [Unknown]
